FAERS Safety Report 19854208 (Version 2)
Quarter: 2025Q2

REPORT INFORMATION
  Report Type: Spontaneous
  Country: ES (occurrence: ES)
  Receive Date: 20210920
  Receipt Date: 20250520
  Transmission Date: 20250717
  Serious: Yes (Hospitalization, Other)
  Sender: CELLTRION
  Company Number: ES-CELLTRION INC.-2021ES012525

PATIENT

DRUGS (2)
  1. RITUXIMAB [Suspect]
     Active Substance: RITUXIMAB
     Indication: Chronic lymphocytic leukaemia
     Route: 065
     Dates: start: 2013
  2. BENDAMUSTINE HYDROCHLORIDE [Suspect]
     Active Substance: BENDAMUSTINE HYDROCHLORIDE
     Indication: Chronic lymphocytic leukaemia
     Route: 042
     Dates: start: 2013

REACTIONS (6)
  - CD4 lymphocytes decreased [Unknown]
  - Epstein-Barr virus infection reactivation [Unknown]
  - Cytomegalovirus infection reactivation [Unknown]
  - Septic shock [Recovered/Resolved]
  - Achromobacter infection [Recovered/Resolved]
  - Product use issue [Unknown]

NARRATIVE: CASE EVENT DATE: 20130101
